FAERS Safety Report 6207025-4 (Version None)
Quarter: 2009Q2

REPORT INFORMATION
  Report Type: 
  Country: None (occurrence: None)
  Receive Date: 20090528
  Receipt Date: 20090521
  Transmission Date: 20091009
  Serious: Yes (Hospitalization, Other)
  Sender: FDA-Public Use
  Company Number: PHHY2008MX22087

PATIENT
  Age: 67 Year
  Sex: Male

DRUGS (2)
  1. DIOVAN HCT [Suspect]
     Indication: HYPERTENSION
     Dosage: 1 DF, QD
     Route: 048
     Dates: start: 20030101
  2. DIOVAN HCT [Suspect]
     Dosage: 2 DF, QD
     Route: 048
     Dates: start: 20090510

REACTIONS (9)
  - BREATH SOUNDS ABNORMAL [None]
  - CHEST PAIN [None]
  - DEHYDRATION [None]
  - HEPATIC NEOPLASM MALIGNANT [None]
  - HYDROCELE [None]
  - HYDROCELE OPERATION [None]
  - PNEUMONIA [None]
  - RENAL DISORDER [None]
  - VOMITING [None]
